FAERS Safety Report 25970061 (Version 2)
Quarter: 2025Q4

REPORT INFORMATION
  Report Type: Spontaneous
  Country: US (occurrence: US)
  Receive Date: 20251028
  Receipt Date: 20251103
  Transmission Date: 20260118
  Serious: Yes (Other)
  Sender: AMGEN
  Company Number: US-AMGEN-USASP2025210061

PATIENT
  Age: 72 Year
  Sex: Female

DRUGS (7)
  1. REPATHA [Suspect]
     Active Substance: EVOLOCUMAB
     Indication: Cardiac disorder
     Dosage: UNK
     Route: 065
     Dates: start: 201802
  2. REPATHA [Suspect]
     Active Substance: EVOLOCUMAB
     Indication: Blood cholesterol increased
     Dosage: 140 MILLIGRAM, Q2WK
     Route: 065
  3. VITAMIN D3 [Concomitant]
     Active Substance: CHOLECALCIFEROL
  4. DIETARY SUPPLEMENT [Concomitant]
     Active Substance: DIETARY SUPPLEMENT
  5. VITAMIN E [Concomitant]
     Active Substance: .ALPHA.-TOCOPHEROL
  6. FRANKINCENSE [Concomitant]
     Active Substance: FRANKINCENSE
  7. L glutathione [Concomitant]
     Indication: Immune system disorder

REACTIONS (10)
  - Intracranial aneurysm [Unknown]
  - Knee arthroplasty [Unknown]
  - Colon operation [Unknown]
  - Productive cough [Unknown]
  - Chest pain [Unknown]
  - COVID-19 [Unknown]
  - Fall [Unknown]
  - Herpes zoster [Unknown]
  - Dyspnoea [Unknown]
  - Hypersensitivity [Unknown]

NARRATIVE: CASE EVENT DATE: 20210101
